FAERS Safety Report 10441588 (Version 1)
Quarter: 2014Q3

REPORT INFORMATION
  Report Type: Report from Study
  Country: IN (occurrence: IN)
  Receive Date: 20140908
  Receipt Date: 20140908
  Transmission Date: 20150326
  Serious: Yes (Hospitalization)
  Sender: FDA-Public Use
  Company Number: PHHY2014IN110032

PATIENT
  Age: 61 Year
  Sex: Male
  Weight: 97 kg

DRUGS (3)
  1. DIOVAN [Suspect]
     Active Substance: VALSARTAN
     Indication: RENAL DISORDER
     Dosage: 2 DF (160 MG), BID (2 DF IN THE MORNING AND 2 DF IN EVENING)
     Route: 048
  2. NICARDIA [Concomitant]
     Indication: HYPERTENSION
     Dosage: 30 MG, QD
  3. DIOVAN [Suspect]
     Active Substance: VALSARTAN
     Indication: HYPERTENSION
     Dosage: 2 DF, (160 MG)

REACTIONS (2)
  - Gait disturbance [Recovering/Resolving]
  - Toothache [Recovering/Resolving]
